FAERS Safety Report 7938928-8 (Version None)
Quarter: 2011Q4

REPORT INFORMATION
  Report Type: 
  Country: None (occurrence: None)
  Receive Date: 20111124
  Receipt Date: 20111117
  Transmission Date: 20120403
  Serious: Yes (Hospitalization, Other)
  Sender: FDA-Public Use
  Company Number: BR-BRISTOL-MYERS SQUIBB COMPANY-16240574

PATIENT
  Age: 69 Year
  Sex: Female
  Weight: 65 kg

DRUGS (6)
  1. RASILEZ [Concomitant]
     Dosage: 1 DF : 1 TAB,1 YEARS AGO,TABS
     Route: 048
  2. VYTORIN [Concomitant]
     Indication: BLOOD CHOLESTEROL
     Dosage: 1 DF : 1 TAB,2 YEARS AGO,TABS
     Route: 048
     Dates: start: 20110101
  3. ARELIX [Concomitant]
     Dosage: 1 DF : 1 TAB,3 YEARS AGO,TABS
     Route: 048
  4. IRBESARTAN [Suspect]
     Indication: HYPERTENSION
     Dosage: 1 DF : 1 TAB,3 YEARS AGO
     Route: 048
  5. CEBRALAT [Concomitant]
     Dosage: 1 DF : 1 TAB,3 YEARS AGO,TABS
     Route: 048
  6. HYPERIUM [Concomitant]
     Dosage: 1 DF : 1 TAB,3 YEARS AGO,TABS
     Route: 048

REACTIONS (1)
  - VOCAL CORD NEOPLASM [None]
